FAERS Safety Report 8243207-8 (Version None)
Quarter: 2012Q1

REPORT INFORMATION
  Report Type: 
  Country: None (occurrence: None)
  Receive Date: 20120329
  Receipt Date: 20120325
  Transmission Date: 20120608
  Serious: No
  Sender: FDA-Public Use
  Company Number: US-BAYER-2012-030231

PATIENT
  Sex: Female

DRUGS (4)
  1. ALEVE (CAPLET) [Suspect]
     Indication: PRODUCT USED FOR UNKNOWN INDICATION
     Route: 048
  2. EXCEDRIN (MIGRAINE) [Concomitant]
  3. EXCEDRIN MENSTRUAL [Concomitant]
  4. PAMPRIN TAB [Suspect]

REACTIONS (2)
  - NAUSEA [None]
  - DIZZINESS [None]
